FAERS Safety Report 5474881-7 (Version None)
Quarter: 2007Q4

REPORT INFORMATION
  Report Type: 
  Country: None (occurrence: None)
  Receive Date: 20071002
  Receipt Date: 20070920
  Transmission Date: 20080405
  Serious: Yes (Hospitalization)
  Sender: FDA-Public Use
  Company Number: TR-ROCHE-519934

PATIENT
  Age: 23 Year
  Sex: Male

DRUGS (1)
  1. ROFERON-A [Suspect]
     Indication: HEPATITIS B
     Dosage: DOSE REPORTED AS 9 MIU
     Route: 065
     Dates: start: 20000901

REACTIONS (1)
  - GUILLAIN-BARRE SYNDROME [None]
